FAERS Safety Report 7999481-6 (Version None)
Quarter: 2011Q4

REPORT INFORMATION
  Report Type: 
  Country: None (occurrence: None)
  Receive Date: 20111221
  Receipt Date: 20111207
  Transmission Date: 20120403
  Serious: Yes (Death, Other)
  Sender: FDA-Public Use
  Company Number: US-ROCHE-1021103

PATIENT

DRUGS (3)
  1. DOXORUBICIN HCL [Suspect]
     Indication: BURKITT'S LYMPHOMA
     Route: 042
  2. MABTHERA [Suspect]
     Indication: BURKITT'S LYMPHOMA
     Route: 042
  3. METHOTREXATE [Suspect]
     Indication: BURKITT'S LYMPHOMA
     Route: 042

REACTIONS (10)
  - ANAEMIA [None]
  - CONVULSION [None]
  - MUCOSAL INFLAMMATION [None]
  - DIARRHOEA [None]
  - THROMBOCYTOPENIA [None]
  - FEBRILE NEUTROPENIA [None]
  - EJECTION FRACTION DECREASED [None]
  - DEATH [None]
  - TRANSAMINASES INCREASED [None]
  - BLOOD CREATININE INCREASED [None]
